FAERS Safety Report 7713322-3 (Version None)
Quarter: 2011Q3

REPORT INFORMATION
  Report Type: 
  Country: None (occurrence: None)
  Receive Date: 20110826
  Receipt Date: 20110817
  Transmission Date: 20111222
  Serious: Yes (Disabling)
  Sender: FDA-Public Use
  Company Number: NO-JNJFOC-20110105365

PATIENT
  Sex: Male
  Weight: 72 kg

DRUGS (7)
  1. REMICADE [Suspect]
     Dosage: 300-500 MG
     Route: 042
     Dates: start: 20101012
  2. RAMIPRIL [Concomitant]
     Indication: HYPERTENSION
     Route: 048
  3. METOPROLOL [Concomitant]
     Indication: ATRIAL FIBRILLATION
     Route: 065
  4. REMICADE [Suspect]
     Indication: CROHN'S DISEASE
     Route: 042
     Dates: start: 20090421
  5. WARFARIN SODIUM [Concomitant]
     Indication: ATRIAL FIBRILLATION
     Route: 048
  6. IMURAN [Suspect]
     Indication: CROHN'S DISEASE
     Dates: start: 20090905
  7. PRAVACHOL [Concomitant]

REACTIONS (2)
  - ATRIAL FIBRILLATION [None]
  - INTERSTITIAL LUNG DISEASE [None]
